FAERS Safety Report 10326831 (Version 2)
Quarter: 2015Q1

REPORT INFORMATION
  Report Type: Other
  Country: US (occurrence: US)
  Receive Date: 20140720
  Receipt Date: 20150320
  Transmission Date: 20150720
  Serious: Yes (Hospitalization, Other)
  Sender: FDA-Public Use
  Company Number: US-GSKPPD-2014GSK021892

PATIENT
  Age: 57 Year
  Sex: Male
  Weight: 142.1 kg

DRUGS (10)
  1. CARVEDILOL. [Concomitant]
     Active Substance: CARVEDILOL
  2. AVANDIA [Suspect]
     Active Substance: ROSIGLITAZONE MALEATE
     Indication: DIABETES MELLITUS
     Dosage: DATES OF AVANDIA USE COULD NOT BE CONFIRMED IN RECORDS REVIEWED.
     Route: 048
  3. PRADAXA [Concomitant]
     Active Substance: DABIGATRAN ETEXILATE MESYLATE
  4. AVANDAMET [Suspect]
     Active Substance: METFORMIN HYDROCHLORIDE\ROSIGLITAZONE MALEATE
     Indication: DIABETES MELLITUS
     Dosage: DATES OF AVANDAMET USE COULD NOT BE CONFIRMED IN RECORDS REVIEWED.
  5. AMIODARONE [Concomitant]
     Active Substance: AMIODARONE
     Dosage: FOR FIVE DAYS THEN 200 MG DAILY
  6. DEMADEX [Concomitant]
     Active Substance: TORSEMIDE
  7. LASIX [Concomitant]
     Active Substance: FUROSEMIDE
     Dosage: P.R.N. FOR BODY WEIGHT MORE THAN 300 POUNDS
  8. DIGOXIN. [Concomitant]
     Active Substance: DIGOXIN
     Dosage: HOLD FOR HEART RATE LESS THAN 60 BEATS PER MINUTE.
  9. ASPIRIN. [Concomitant]
     Active Substance: ASPIRIN
  10. ZESTORETIC [Concomitant]
     Active Substance: HYDROCHLOROTHIAZIDE\LISINOPRIL
     Dosage: 20/12.5?HOLD IF SYSTOLIC BLOOD PRESSURE LESS THAN 110.

REACTIONS (1)
  - Cardiac failure congestive [Recovered/Resolved]

NARRATIVE: CASE EVENT DATE: 20110103
